FAERS Safety Report 13426381 (Version 4)
Quarter: 2017Q2

REPORT INFORMATION
  Report Type: Spontaneous
  Country: IN (occurrence: IN)
  Receive Date: 20170411
  Receipt Date: 20170509
  Transmission Date: 20170830
  Serious: Yes (Other)
  Sender: FDA-Public Use
  Company Number: IN-ROCHE-1916724

PATIENT

DRUGS (1)
  1. AVASTIN [Suspect]
     Active Substance: BEVACIZUMAB
     Indication: DIABETIC RETINOPATHY
     Dosage: VIALS 100 MG/4 ML
     Route: 050

REACTIONS (3)
  - Eye infection [Recovered/Resolved]
  - Off label use [Unknown]
  - Suspected transmission of an infectious agent via product [Unknown]
